FAERS Safety Report 5519943-0 (Version None)
Quarter: 2007Q4

REPORT INFORMATION
  Report Type: 
  Country: None (occurrence: None)
  Receive Date: 20071116
  Receipt Date: 20071114
  Transmission Date: 20080405
  Serious: Yes (Death)
  Sender: FDA-Public Use
  Company Number: GB-ASTRAZENECA-2007GB02308

PATIENT
  Age: 82 Year
  Sex: Female
  Weight: 35 kg

DRUGS (5)
  1. SEROQUEL [Suspect]
     Indication: AGITATION
     Route: 048
     Dates: start: 20071002
  2. SEROQUEL [Suspect]
     Indication: DEMENTIA
     Route: 048
     Dates: start: 20071002
  3. ASPIRIN [Concomitant]
     Indication: HYPERTENSION
     Route: 048
     Dates: start: 20041101
  4. FELODIPINE [Concomitant]
     Indication: HYPERTENSION
     Route: 048
     Dates: start: 20021023, end: 20070929
  5. RAMIPRIL [Concomitant]
     Indication: HYPERTENSION
     Route: 048
     Dates: start: 20030611

REACTIONS (1)
  - DISEASE PROGRESSION [None]
